FAERS Safety Report 14249733 (Version 1)
Quarter: 2017Q4

REPORT INFORMATION
  Report Type: Spontaneous
  Country: US (occurrence: US)
  Receive Date: 20171205
  Receipt Date: 20171205
  Transmission Date: 20180321
  Serious: Yes (Other)
  Sender: FDA-Public Use
  Company Number: US-JNJFOC-20171128158

PATIENT
  Sex: Female

DRUGS (3)
  1. ROC RETINOL CORREXION DEEP WRINKLE DAILY MOISTURIZER SUNSCREEN BROAD SPECTRUM SPF30 [Suspect]
     Active Substance: AVOBENZONE\HOMOSALATE\OCTOCRYLENE\OXYBENZONE
     Indication: PRODUCT USED FOR UNKNOWN INDICATION
     Dosage: INDICATION: FACIAL TREATMENT
     Route: 061
  2. ROC RETINOL CORREXION DEEP WRINKLE FILLER USA [Suspect]
     Active Substance: COSMETICS
     Indication: PRODUCT USED FOR UNKNOWN INDICATION
     Dosage: INDICATION: FACIAL TREATMENT
     Route: 061
  3. ROC RETINOL CORREXION EYE CREAM USA [Suspect]
     Active Substance: COSMETICS
     Indication: PRODUCT USED FOR UNKNOWN INDICATION
     Dosage: INDICATION: FACIAL TREATMENT
     Route: 061

REACTIONS (1)
  - Breast cancer [Unknown]
